FAERS Safety Report 17569830 (Version 1)
Quarter: 2020Q1

REPORT INFORMATION
  Report Type: Spontaneous
  Country: DE (occurrence: DE)
  Receive Date: 20200323
  Receipt Date: 20200323
  Transmission Date: 20200409
  Serious: Yes (Other)
  Sender: FDA-Public Use
  Company Number: DE-EMD SERONO-E2B_90075942

PATIENT
  Sex: Female

DRUGS (1)
  1. REBIF [Suspect]
     Active Substance: INTERFERON BETA-1A
     Indication: PRODUCT USED FOR UNKNOWN INDICATION

REACTIONS (4)
  - Infection susceptibility increased [Unknown]
  - Influenza like illness [Unknown]
  - Magnetic resonance imaging abnormal [Unknown]
  - Emotional disorder [Unknown]

NARRATIVE: CASE EVENT DATE: 201911
